FAERS Safety Report 5852635-7 (Version None)
Quarter: 2008Q3

REPORT INFORMATION
  Report Type: 
  Country: None (occurrence: None)
  Receive Date: 20080821
  Receipt Date: 20080819
  Transmission Date: 20090109
  Serious: Yes (Hospitalization)
  Sender: FDA-Public Use
  Company Number: B0527370A

PATIENT
  Age: 72 Year
  Sex: Female

DRUGS (13)
  1. AUGMENTIN '125' [Suspect]
     Indication: SIGMOIDITIS
     Route: 048
     Dates: start: 20070914, end: 20070924
  2. DEBRIDAT [Suspect]
     Indication: SIGMOIDITIS
     Route: 048
     Dates: start: 20070914, end: 20070924
  3. ZYPREXA [Suspect]
     Dosage: 15MG PER DAY
     Route: 048
  4. DEPAKENE [Suspect]
     Indication: EPILEPSY
     Dosage: 1TAB TWICE PER DAY
     Route: 048
  5. SINTROM [Suspect]
     Indication: PULMONARY EMBOLISM
     Route: 048
  6. LEPTICUR [Suspect]
     Indication: PROPHYLAXIS
     Dosage: 1TAB PER DAY
     Route: 048
  7. IMOVANE [Suspect]
     Indication: DRUG USE FOR UNKNOWN INDICATION
     Dosage: 1UNIT PER DAY
     Route: 048
  8. LASIX [Suspect]
     Indication: DRUG USE FOR UNKNOWN INDICATION
     Route: 048
  9. FORLAX [Suspect]
     Indication: DRUG USE FOR UNKNOWN INDICATION
     Route: 048
  10. TIORFAN [Concomitant]
     Indication: DRUG USE FOR UNKNOWN INDICATION
     Route: 048
  11. DOMPERIDONE [Concomitant]
     Indication: DRUG USE FOR UNKNOWN INDICATION
     Route: 048
  12. ULTRA LEVURE [Concomitant]
     Indication: SIGMOIDITIS
     Route: 048
     Dates: start: 20070914, end: 20070924
  13. DIPROSONE [Concomitant]
     Route: 065

REACTIONS (11)
  - BREATH SOUNDS [None]
  - CARDIAC MURMUR [None]
  - DERMATITIS [None]
  - LYMPHATIC DISORDER [None]
  - OEDEMA PERIPHERAL [None]
  - PRURITUS [None]
  - RALES [None]
  - RASH MACULO-PAPULAR [None]
  - SKIN LESION [None]
  - TOXIC SKIN ERUPTION [None]
  - VENOUS INSUFFICIENCY [None]
